FAERS Safety Report 13998741 (Version 1)
Quarter: 2017Q3

REPORT INFORMATION
  Report Type: Not Available
  Country: US (occurrence: US)
  Receive Date: 20170921
  Receipt Date: 20170921
  Transmission Date: 20171128
  Serious: No
  Sender: FDA-Public Use
  Company Number: US-NEUROCRINE BIOSCIENCES INC.-2017NBI00486

PATIENT
  Age: 39 Year
  Sex: Female

DRUGS (6)
  1. NORTRIPTYLINE [Concomitant]
     Active Substance: NORTRIPTYLINE
  2. BENZTROPINE [Concomitant]
     Active Substance: BENZTROPINE
  3. KLONOPIN [Concomitant]
     Active Substance: CLONAZEPAM
  4. INGREZZA [Suspect]
     Active Substance: VALBENAZINE
     Indication: PRODUCT USED FOR UNKNOWN INDICATION
     Route: 048
     Dates: start: 20170512
  5. BRINTELLIX [Concomitant]
     Active Substance: VORTIOXETINE HYDROBROMIDE
  6. CLOZAPINE. [Concomitant]
     Active Substance: CLOZAPINE

REACTIONS (1)
  - Drug effect incomplete [Recovering/Resolving]

NARRATIVE: CASE EVENT DATE: 20170512
